FAERS Safety Report 25208024 (Version 1)
Quarter: 2025Q2

REPORT INFORMATION
  Report Type: Other
  Country: CN (occurrence: CN)
  Receive Date: 20250417
  Receipt Date: 20250417
  Transmission Date: 20250716
  Serious: Yes (Hospitalization)
  Sender: Apozeal Pharmaceuticals
  Company Number: CN-Apozeal Pharmaceuticals-2175070

PATIENT
  Age: 52 Year
  Sex: Female

DRUGS (15)
  1. RISPERIDONE [Suspect]
     Active Substance: RISPERIDONE
     Indication: Schizophrenia
  2. ZIPRASIDONE [Suspect]
     Active Substance: ZIPRASIDONE
  3. HERBALS [Suspect]
     Active Substance: HERBALS
  4. CRATAEGUS [Suspect]
     Active Substance: HAWTHORN LEAF WITH FLOWER
  5. HERBALS [Suspect]
     Active Substance: HERBALS
  6. ADENOSINE TRIPHOSPHATE DISODIUM [Suspect]
     Active Substance: ADENOSINE TRIPHOSPHATE DISODIUM
  7. INOSINE [Suspect]
     Active Substance: INOSINE
  8. PROPRANOLOL [Suspect]
     Active Substance: PROPRANOLOL HYDROCHLORIDE
  9. HERBALS [Suspect]
     Active Substance: HERBALS
  10. ORYZANOL [Suspect]
     Active Substance: GAMMA ORYZANOL
  11. TRIHEXYPHENIDYL HYDROCHLORIDE [Suspect]
     Active Substance: TRIHEXYPHENIDYL HYDROCHLORIDE
  12. CLOZAPINE [Suspect]
     Active Substance: CLOZAPINE
  13. OLANZAPINE [Suspect]
     Active Substance: OLANZAPINE
  14. SULPIRIDE [Suspect]
     Active Substance: SULPIRIDE
  15. ARIPIPRAZOLE [Suspect]
     Active Substance: ARIPIPRAZOLE

REACTIONS (13)
  - Toxicity to various agents [Unknown]
  - Overdose [Unknown]
  - Intentional product misuse [Unknown]
  - Constipation [Unknown]
  - Anxiety [Unknown]
  - Abulia [Unknown]
  - Psychomotor retardation [Unknown]
  - Salivary hypersecretion [Unknown]
  - Anosognosia [Unknown]
  - Memory impairment [Unknown]
  - Jealous delusion [Unknown]
  - Delusion of reference [Unknown]
  - Distractibility [Unknown]
